FAERS Safety Report 16999534 (Version 1)
Quarter: 2019Q4

REPORT INFORMATION
  Report Type: Spontaneous
  Country: US (occurrence: US)
  Receive Date: 20191105
  Receipt Date: 20191105
  Transmission Date: 20200122
  Serious: No
  Sender: FDA-Public Use
  Company Number: US-AMGEN-USASP2019182000

PATIENT
  Sex: Female

DRUGS (21)
  1. ONDANSETRON [Concomitant]
     Active Substance: ONDANSETRON
     Dosage: 4 MILLIGRAM, UNK
  2. AMLODIPINE [Concomitant]
     Active Substance: AMLODIPINE BESYLATE
     Dosage: 5 MILLIGRAM, UNK
  3. MELOXICAM. [Concomitant]
     Active Substance: MELOXICAM
     Dosage: 15 MILLIGRAM, UNK
  4. METFORMIN [Concomitant]
     Active Substance: METFORMIN HYDROCHLORIDE
     Dosage: 500 MILLIGRAM, UNK
  5. NAPROXEN. [Concomitant]
     Active Substance: NAPROXEN
     Dosage: 500 MILLIGRAM, UNK
  6. SIMVASTATIN. [Concomitant]
     Active Substance: SIMVASTATIN
     Dosage: 20 MILLIGRAM, UNK
  7. ENBREL [Suspect]
     Active Substance: ETANERCEPT
     Indication: RHEUMATOID ARTHRITIS
     Dosage: 50 MILLIGRAM, QWK
     Route: 058
  8. FLUOROMETHOLON [Concomitant]
     Dosage: 0.1 PERCENT, UNK
  9. HYDROCODONE BITARTRATE AND ACETAMINOPHEN [Concomitant]
     Active Substance: ACETAMINOPHEN\HYDROCODONE BITARTRATE
     Dosage: 7.5-325, UNK
  10. OFLOXACIN. [Concomitant]
     Active Substance: OFLOXACIN
     Dosage: 0.3 PERCENT, UNK
  11. DICLOFENAC [Concomitant]
     Active Substance: DICLOFENAC
     Dosage: 75 MILLIGRAM, UNK
  12. OMEPRAZOLE. [Concomitant]
     Active Substance: OMEPRAZOLE
     Dosage: 20 MILLIGRAM, UNK
  13. PREDNISOLONE. [Concomitant]
     Active Substance: PREDNISOLONE
     Dosage: 1 PERCENT, UNK
  14. ATORVASTATIN [Concomitant]
     Active Substance: ATORVASTATIN
     Dosage: 10 MILLIGRAM, UNK
  15. ISONIAZID. [Concomitant]
     Active Substance: ISONIAZID
     Dosage: 300 MILLIGRAM, UNK
  16. METHOTREXATE. [Concomitant]
     Active Substance: METHOTREXATE
     Dosage: 2.5 MILLIGRAM, UNK
  17. RANITIDINE. [Concomitant]
     Active Substance: RANITIDINE
     Dosage: 300 MILLIGRAM, UNK
  18. DICLOFENAC [Concomitant]
     Active Substance: DICLOFENAC
     Dosage: 0.1 PERCENT, UNK
  19. FLUTICASONE. [Concomitant]
     Active Substance: FLUTICASONE
     Dosage: 50 MICROGRAM, UNK
  20. PREDNISONE. [Concomitant]
     Active Substance: PREDNISONE
     Dosage: 20 MILLIGRAM, UNK
  21. TYLENOL [Concomitant]
     Active Substance: ACETAMINOPHEN
     Dosage: UNK

REACTIONS (1)
  - Product dose omission [Recovered/Resolved]
